FAERS Safety Report 6369550-5 (Version None)
Quarter: 2009Q3

REPORT INFORMATION
  Report Type: 
  Country: None (occurrence: None)
  Receive Date: 20090923
  Receipt Date: 20090823
  Transmission Date: 20100115
  Serious: No
  Sender: FDA-Public Use
  Company Number: US-BAYER-200930831NA

PATIENT
  Age: 16 Year
  Sex: Male
  Weight: 64 kg

DRUGS (1)
  1. AVELOX [Suspect]
     Indication: INFLUENZA LIKE ILLNESS
     Dates: start: 20090821

REACTIONS (1)
  - RASH [None]
